FAERS Safety Report 5108206-3 (Version None)
Quarter: 2006Q3

REPORT INFORMATION
  Report Type: 
  Country: None (occurrence: None)
  Receive Date: 20060915
  Receipt Date: 20060911
  Transmission Date: 20061208
  Serious: Yes (Death)
  Sender: FDA-Public Use
  Company Number: 2006-BP-10602RO

PATIENT
  Sex: Male

DRUGS (2)
  1. LITHIUM CARBONATE [Suspect]
     Indication: DEPRESSION
     Dosage: PO
     Route: 048
  2. ANDROGEL [Suspect]
     Indication: DEPRESSION
     Dosage: 1% TOPICAL GEL (SEE TEXT), TO
     Route: 061
     Dates: start: 20051101

REACTIONS (1)
  - COMPLETED SUICIDE [None]
